FAERS Safety Report 24128215 (Version 2)
Quarter: 2024Q3

REPORT INFORMATION
  Report Type: Spontaneous
  Country: US (occurrence: US)
  Receive Date: 20240723
  Receipt Date: 20240802
  Transmission Date: 20241016
  Serious: No
  Sender: TAIHO ONCOLOGY INC
  Company Number: US-TAIHOP-2024-007056

PATIENT
  Age: 80 Year
  Sex: Male

DRUGS (1)
  1. LONSURF [Suspect]
     Active Substance: TIPIRACIL HYDROCHLORIDE\TRIFLURIDINE
     Indication: Colorectal cancer stage IV
     Dosage: FORM STRENGTH, DOSE, FREQUENCY AND CYCLE WAS UNKNOWN
     Route: 048
     Dates: start: 20240716

REACTIONS (3)
  - Asthenia [Unknown]
  - Balance disorder [Unknown]
  - Dizziness [Unknown]
